FAERS Safety Report 25874225 (Version 1)
Quarter: 2025Q4

REPORT INFORMATION
  Report Type: Report from Study
  Country: US (occurrence: US)
  Receive Date: 20251002
  Receipt Date: 20251002
  Transmission Date: 20260118
  Serious: Yes (Hospitalization)
  Sender: pharmaAND
  Company Number: US-Pharmaand-2025000911

PATIENT
  Sex: Female
  Weight: 93.4 kg

DRUGS (3)
  1. RUBRACA [Suspect]
     Active Substance: RUCAPARIB CAMSYLATE
     Indication: Ovarian cancer
     Dosage: 300MG TWICE DAILY
     Route: 048
  2. RUBRACA [Suspect]
     Active Substance: RUCAPARIB CAMSYLATE
     Indication: Ovarian cancer
     Dosage: 600MG TWICE DAILY
     Route: 048
  3. NEULASTA [Concomitant]
     Active Substance: PEGFILGRASTIM

REACTIONS (3)
  - Bacterial infection [Unknown]
  - Renal disorder [Unknown]
  - Drug ineffective [Recovered/Resolved]
